FAERS Safety Report 8756815 (Version 1)
Quarter: 2012Q4

REPORT INFORMATION
  Report Type: 
  Country: US (occurrence: US)
  Receive Date: 20120828
  Receipt Date: 20120828
  Transmission Date: 20130627
  Serious: No
  Sender: FDA-Public Use
  Company Number: US-BAYER-2012-087779

PATIENT

DRUGS (3)
  1. ALEVE CAPLET/TABLET,MIDOL EXTENDED RELIEF CAPLET [Suspect]
     Indication: PAIN
     Dosage: 2 DF, UNK
     Route: 048
     Dates: start: 20120820
  2. AZO [Concomitant]
     Indication: PAIN
     Dosage: 2 DF, UNK
  3. AMOXICILLIN [Concomitant]
     Indication: PAIN

REACTIONS (1)
  - Pain [Unknown]
